FAERS Safety Report 15212993 (Version 1)
Quarter: 2018Q3

REPORT INFORMATION
  Report Type: Report from Study
  Country: NL (occurrence: NL)
  Receive Date: 20180730
  Receipt Date: 20180730
  Transmission Date: 20181010
  Serious: Yes (Other)
  Sender: FDA-Public Use
  Company Number: NL-TEVA-2018-NL-932065

PATIENT
  Age: 44 Year
  Sex: Male

DRUGS (3)
  1. ALIROCUMAB [Suspect]
     Active Substance: ALIROCUMAB
     Indication: HYPERCHOLESTEROLAEMIA
     Dates: start: 20170622, end: 20171108
  2. PRALUENT [Suspect]
     Active Substance: ALIROCUMAB
     Indication: HYPERCHOLESTEROLAEMIA
     Route: 058
     Dates: start: 20170622, end: 20171108
  3. EZETIMIBE. [Suspect]
     Active Substance: EZETIMIBE
     Route: 048

REACTIONS (8)
  - Alanine aminotransferase increased [Recovering/Resolving]
  - Liver function test abnormal [Recovering/Resolving]
  - Alcohol abuse [Recovered/Resolved]
  - Hepatitis alcoholic [Recovering/Resolving]
  - Diarrhoea [Recovered/Resolved]
  - Aspartate aminotransferase increased [Recovering/Resolving]
  - Gamma-glutamyltransferase increased [Recovering/Resolving]
  - Pneumonia [Recovered/Resolved]

NARRATIVE: CASE EVENT DATE: 2017
